FAERS Safety Report 4331463-8 (Version None)
Quarter: 2004Q1

REPORT INFORMATION
  Report Type: 
  Country: None (occurrence: None)
  Receive Date: 20040329
  Receipt Date: 20040317
  Transmission Date: 20041129
  Serious: Yes (Hospitalization)
  Sender: FDA-Public Use
  Company Number: US-JNJFOC-20040304515

PATIENT
  Age: 33 Year
  Sex: Male
  Weight: 132.4503 kg

DRUGS (15)
  1. RISPERDAL [Suspect]
     Indication: SCHIZOPHRENIA
     Dosage: 1 TABLET; 1 TABLETS; 2 TABLET
     Dates: end: 20040227
  2. RISPERDAL [Suspect]
     Indication: SCHIZOPHRENIA
     Dosage: 1 TABLET; 1 TABLETS; 2 TABLET
     Dates: start: 20040302, end: 20040307
  3. RISPERDAL [Suspect]
     Indication: SCHIZOPHRENIA
     Dosage: 1 TABLET; 1 TABLETS; 2 TABLET
     Dates: start: 20040308
  4. OLANZAPINE [Suspect]
     Indication: SCHIZOPHRENIA
     Dosage: 1 TABLET; 1 TABLET; 2 TABLETS
     Dates: end: 20040227
  5. OLANZAPINE [Suspect]
     Indication: SCHIZOPHRENIA
     Dosage: 1 TABLET; 1 TABLET; 2 TABLETS
     Dates: start: 20040302, end: 20040307
  6. OLANZAPINE [Suspect]
     Indication: SCHIZOPHRENIA
     Dosage: 1 TABLET; 1 TABLET; 2 TABLETS
     Dates: start: 20040308
  7. QUETIAPINE (QUETIAPINE) [Suspect]
     Indication: SCHIZOPHRENIA
     Dosage: 1 TABLET; 1 TABLET; 2 TABLETS
     Dates: end: 20040227
  8. QUETIAPINE (QUETIAPINE) [Suspect]
     Indication: SCHIZOPHRENIA
     Dosage: 1 TABLET; 1 TABLET; 2 TABLETS
     Dates: start: 20040302, end: 20040307
  9. QUETIAPINE (QUETIAPINE) [Suspect]
     Indication: SCHIZOPHRENIA
     Dosage: 1 TABLET; 1 TABLET; 2 TABLETS
     Dates: start: 20040308
  10. ZIPRASIDONE [Suspect]
     Indication: SCHIZOPHRENIA
     Dosage: 1 TABLET; 1 TABLET; 2 TABLET
     Dates: end: 20040227
  11. ZIPRASIDONE [Suspect]
     Indication: SCHIZOPHRENIA
     Dosage: 1 TABLET; 1 TABLET; 2 TABLET
     Dates: start: 20040302, end: 20040307
  12. ZIPRASIDONE [Suspect]
     Indication: SCHIZOPHRENIA
     Dosage: 1 TABLET; 1 TABLET; 2 TABLET
     Dates: start: 20040308
  13. PERPHENAZINE [Suspect]
     Indication: SCHIZOPHRENIA
     Dosage: ONE TABLET; 1 TABLETS; 2 TABLETS
     Dates: end: 20040227
  14. PERPHENAZINE [Suspect]
     Indication: SCHIZOPHRENIA
     Dosage: ONE TABLET; 1 TABLETS; 2 TABLETS
     Dates: start: 20040302, end: 20040307
  15. PERPHENAZINE [Suspect]
     Indication: SCHIZOPHRENIA
     Dosage: ONE TABLET; 1 TABLETS; 2 TABLETS
     Dates: start: 20040308

REACTIONS (6)
  - CONSTIPATION [None]
  - GALLBLADDER DISORDER [None]
  - HEADACHE [None]
  - HEPATITIS B [None]
  - HEPATOMEGALY [None]
  - VOMITING [None]
